FAERS Safety Report 12164708 (Version 2)
Quarter: 2016Q2

REPORT INFORMATION
  Report Type: Spontaneous
  Country: US (occurrence: US)
  Receive Date: 20160309
  Receipt Date: 20160603
  Transmission Date: 20160815
  Serious: No
  Sender: FDA-Public Use
  Company Number: US-ROCHE-1708320

PATIENT
  Age: 61 Year
  Sex: Female
  Weight: 78.5 kg

DRUGS (2)
  1. MINOCYCLINE [Concomitant]
     Active Substance: MINOCYCLINE\MINOCYCLINE HYDROCHLORIDE
  2. COTELLIC [Suspect]
     Active Substance: COBIMETINIB
     Indication: OVARIAN CANCER
     Dosage: 3 TAB DAILY FOR 21 DAYS OUT 28 DAYS
     Route: 048
     Dates: start: 201601

REACTIONS (4)
  - Rash [Unknown]
  - Acne [Unknown]
  - Diarrhoea [Unknown]
  - Dermatitis acneiform [Recovering/Resolving]

NARRATIVE: CASE EVENT DATE: 201601
